FAERS Safety Report 4662673-8 (Version None)
Quarter: 2005Q2

REPORT INFORMATION
  Report Type: 
  Country: None (occurrence: None)
  Receive Date: 20050516
  Receipt Date: 20040830
  Transmission Date: 20051028
  Serious: Yes (Death)
  Sender: FDA-Public Use
  Company Number: US-GLAXOSMITHKLINE-A0524027A

PATIENT
  Age: 66 Year
  Sex: Male

DRUGS (7)
  1. PAXIL [Suspect]
     Indication: DEPRESSION
     Dosage: 20MG PER DAY
     Route: 048
     Dates: start: 20020220
  2. ATARAX [Concomitant]
  3. LIPITOR [Concomitant]
  4. ASPIRIN [Concomitant]
  5. TOPROL-XL [Concomitant]
  6. NEXIUM [Concomitant]
  7. PLAVIX [Concomitant]

REACTIONS (4)
  - AGGRESSION [None]
  - COMPLETED SUICIDE [None]
  - GUN SHOT WOUND [None]
  - HOMICIDAL IDEATION [None]
